FAERS Safety Report 8430257-1 (Version None)
Quarter: 2012Q2

REPORT INFORMATION
  Report Type: 
  Country: None (occurrence: None)
  Receive Date: 20120323
  Receipt Date: 20111209
  Transmission Date: 20120825
  Serious: Yes (Other)
  Sender: FDA-Public Use
  Company Number: 163-21880-11070376

PATIENT
  Age: 71 Year
  Sex: Female

DRUGS (4)
  1. REVLIMID [Suspect]
     Indication: MULTIPLE MYELOMA
     Dosage: 25 MG, 1 IN 1 D, PO, 10 MG, 1 IN 1 D, PO, 25 MG, 1 IN 1 D, PO, 15 MG, 1 IN1 D, PO
     Route: 048
     Dates: start: 20110601
  2. REVLIMID [Suspect]
     Indication: MULTIPLE MYELOMA
     Dosage: 25 MG, 1 IN 1 D, PO, 10 MG, 1 IN 1 D, PO, 25 MG, 1 IN 1 D, PO, 15 MG, 1 IN1 D, PO
     Route: 048
     Dates: start: 20110101
  3. REVLIMID [Suspect]
     Indication: MULTIPLE MYELOMA
     Dosage: 25 MG, 1 IN 1 D, PO, 10 MG, 1 IN 1 D, PO, 25 MG, 1 IN 1 D, PO, 15 MG, 1 IN1 D, PO
     Route: 048
     Dates: start: 20090201
  4. REVLIMID [Suspect]
     Indication: MULTIPLE MYELOMA
     Dosage: 25 MG, 1 IN 1 D, PO, 10 MG, 1 IN 1 D, PO, 25 MG, 1 IN 1 D, PO, 15 MG, 1 IN1 D, PO
     Route: 048
     Dates: start: 20090601

REACTIONS (4)
  - PANCYTOPENIA [None]
  - LEUKOPENIA [None]
  - MULTIPLE MYELOMA [None]
  - NEOPLASM PROGRESSION [None]
